FAERS Safety Report 6528810-5 (Version None)
Quarter: 2010Q1

REPORT INFORMATION
  Report Type: 
  Country: None (occurrence: None)
  Receive Date: 20100106
  Receipt Date: 20091229
  Transmission Date: 20100710
  Serious: Yes (Other)
  Sender: FDA-Public Use
  Company Number: US-ELI_LILLY_AND_COMPANY-US200910007581

PATIENT
  Sex: Female

DRUGS (6)
  1. HUMULIN N [Suspect]
     Dosage: 28 U, EACH MORNING
  2. HUMULIN N [Suspect]
     Dosage: 20 U, EACH EVENING
  3. HUMALOG [Suspect]
     Dosage: UNK, AS NEEDED
  4. SYNTHROID [Concomitant]
     Dosage: 125 MG, DAILY (1/D)
  5. DIOVAN [Concomitant]
     Dosage: 160 MG, 2/D
  6. TEKTURNA /01763601/ [Concomitant]
     Dosage: 150 MG, DAILY (1/D)

REACTIONS (1)
  - BREAST CANCER IN SITU [None]
